FAERS Safety Report 6086522-9 (Version None)
Quarter: 2009Q1

REPORT INFORMATION
  Report Type: 
  Country: None (occurrence: None)
  Receive Date: 20090213
  Receipt Date: 20090128
  Transmission Date: 20090719
  Serious: No
  Sender: FDA-Public Use
  Company Number: B0558047A

PATIENT
  Age: 54 Year
  Sex: Female

DRUGS (3)
  1. ONDANSETRON HYDROCHLORIDE [Suspect]
  2. VECURONIUM BROMIDE [Concomitant]
  3. PROPOFOL [Concomitant]

REACTIONS (4)
  - ANAPHYLACTIC REACTION [None]
  - HYPOTENSION [None]
  - SKIN TEST POSITIVE [None]
  - TRYPTASE INCREASED [None]
